FAERS Safety Report 25989546 (Version 1)
Quarter: 2025Q4

REPORT INFORMATION
  Report Type: Spontaneous
  Country: CN (occurrence: CN)
  Receive Date: 20251103
  Receipt Date: 20251103
  Transmission Date: 20260117
  Serious: Yes (Life-Threatening, Hospitalization, Congenital Anomaly)
  Sender: MYLAN
  Company Number: CN-MYLANLABS-2025M1093349

PATIENT
  Sex: Female

DRUGS (2)
  1. SILDENAFIL [Suspect]
     Active Substance: SILDENAFIL
     Indication: Pulmonary arterial hypertension
     Dosage: 25 MILLIGRAM (MOTHER RECEIVED AT THREE TIMES A DAY)
  2. SILDENAFIL [Suspect]
     Active Substance: SILDENAFIL
     Dosage: 25 MILLIGRAM, QD (MOTHER RECEIVED AT REDUCED DOSE)

REACTIONS (4)
  - Newborn persistent pulmonary hypertension [Recovered/Resolved]
  - Neonatal respiratory distress syndrome [Recovered/Resolved]
  - Neonatal hypoxia [Recovered/Resolved]
  - Neonatal respiratory failure [Recovered/Resolved]
